FAERS Safety Report 15751838 (Version 1)
Quarter: 2018Q4

REPORT INFORMATION
  Report Type: Spontaneous
  Country: US (occurrence: US)
  Receive Date: 20181221
  Receipt Date: 20181221
  Transmission Date: 20190205
  Serious: No
  Sender: FDA-Public Use
  Company Number: US-ALKEM LABORATORIES LIMITED-US-ALKEM-2018-06919

PATIENT

DRUGS (4)
  1. RIFAPENTINE [Suspect]
     Active Substance: RIFAPENTINE
     Indication: LATENT TUBERCULOSIS
     Dosage: 900 MG, ONCE WEEKLY, (IF WEIGHING MORE THAN 50 KG)
     Route: 065
  2. PYRIDOXINE [Concomitant]
     Active Substance: PYRIDOXINE
     Indication: NEUROTOXICITY
     Dosage: 50 TO 100 MG DAILY
     Route: 065
  3. PYRIDOXINE [Concomitant]
     Active Substance: PYRIDOXINE
     Indication: PROPHYLAXIS
  4. ISONIAZID. [Suspect]
     Active Substance: ISONIAZID
     Indication: LATENT TUBERCULOSIS
     Dosage: 15 MG/KG, ONCE WEEKLY (900 MG MAXIMUM)
     Route: 065

REACTIONS (2)
  - Dizziness [Recovered/Resolved]
  - Hypertension [Recovered/Resolved]
